FAERS Safety Report 5024090-0 (Version None)
Quarter: 2006Q2

REPORT INFORMATION
  Report Type: 
  Country: None (occurrence: None)
  Receive Date: 20060607
  Receipt Date: 20060530
  Transmission Date: 20061013
  Serious: Yes (Other)
  Sender: FDA-Public Use
  Company Number: 2006027910

PATIENT
  Age: 44 Year
  Sex: Male
  Weight: 87.0906 kg

DRUGS (10)
  1. VIAGRA [Suspect]
     Indication: ERECTILE DYSFUNCTION
     Dosage: 50 MG (50 MG 1 AS NECESSARY) ORAL
     Route: 048
     Dates: start: 20020901
  2. ZOCOR [Concomitant]
  3. ZANTAC [Concomitant]
  4. ADDERALL 10 [Concomitant]
  5. LESCOL [Concomitant]
  6. AMBIEN [Concomitant]
  7. CONCERTA [Concomitant]
  8. PREVACID [Concomitant]
  9. ACCUPRIL [Concomitant]
  10. ASPIRIN [Concomitant]

REACTIONS (17)
  - ALANINE AMINOTRANSFERASE INCREASED [None]
  - ASPARTATE AMINOTRANSFERASE INCREASED [None]
  - BLOOD URINE PRESENT [None]
  - CELLULITIS [None]
  - CSF PROTEIN INCREASED [None]
  - HEPATIC STEATOSIS [None]
  - ONYCHOMYCOSIS [None]
  - OPTIC ATROPHY [None]
  - OPTIC ISCHAEMIC NEUROPATHY [None]
  - PAIN IN EXTREMITY [None]
  - PAPILLOEDEMA [None]
  - PARATHYROID GLAND ENLARGEMENT [None]
  - PUPILLARY REFLEX IMPAIRED [None]
  - PUPILS UNEQUAL [None]
  - THYROID NEOPLASM [None]
  - VISION BLURRED [None]
  - VISUAL ACUITY REDUCED [None]
